FAERS Safety Report 13455995 (Version 2)
Quarter: 2017Q2

REPORT INFORMATION
  Report Type: Report from Study
  Country: US (occurrence: US)
  Receive Date: 20170418
  Receipt Date: 20170419
  Transmission Date: 20170830
  Serious: Yes (Other)
  Sender: FDA-Public Use
  Company Number: US-ACTELION-A-NJ2017-152642

PATIENT
  Age: 78 Year
  Sex: Male
  Weight: 58.96 kg

DRUGS (3)
  1. SILDENAFIL. [Concomitant]
     Active Substance: SILDENAFIL
  2. LETAIRIS [Concomitant]
     Active Substance: AMBRISENTAN
  3. UPTRAVI [Suspect]
     Active Substance: SELEXIPAG
     Indication: PULMONARY ARTERIAL HYPERTENSION
     Dosage: 1200 MCG, BID
     Route: 048

REACTIONS (2)
  - Skin neoplasm excision [Unknown]
  - Skin cancer [Unknown]
